FAERS Safety Report 21355464 (Version 1)
Quarter: 2022Q3

REPORT INFORMATION
  Report Type: Spontaneous
  Country: US (occurrence: None)
  Receive Date: 20220920
  Receipt Date: 20220920
  Transmission Date: 20221027
  Serious: Yes (Hospitalization)
  Sender: FDA-Public Use
  Company Number: None

PATIENT
  Age: 60 Year
  Sex: Female
  Weight: 68.4 kg

DRUGS (9)
  1. CITROMA [Suspect]
     Active Substance: MAGNESIUM CITRATE
     Indication: Colonoscopy
     Dosage: OTHER QUANTITY : 4 4 BOTTLES;?FREQUENCY : AS NEEDED;?
     Route: 048
     Dates: start: 20220613, end: 20220614
  2. CITROMA [Suspect]
     Active Substance: MAGNESIUM CITRATE
  3. DULOXETINE [Concomitant]
     Active Substance: DULOXETINE
  4. OMEPRAZOLE [Concomitant]
     Active Substance: OMEPRAZOLE
  5. ATORVASTATIN [Concomitant]
     Active Substance: ATORVASTATIN
  6. LOSARTAN [Concomitant]
     Active Substance: LOSARTAN
  7. LINZESS [Concomitant]
     Active Substance: LINACLOTIDE
  8. multi vitamin for women [Concomitant]
  9. FISH OIL [Concomitant]
     Active Substance: FISH OIL

REACTIONS (4)
  - Vomiting [None]
  - Hemiplegia [None]
  - Gait inability [None]
  - Speech disorder [None]

NARRATIVE: CASE EVENT DATE: 20220614
